FAERS Safety Report 6149793-6 (Version None)
Quarter: 2009Q2

REPORT INFORMATION
  Report Type: 
  Country: None (occurrence: None)
  Receive Date: 20090402
  Receipt Date: 20081017
  Transmission Date: 20091009
  Serious: Yes (Other)
  Sender: FDA-Public Use
  Company Number: 2008SU0253

PATIENT
  Sex: Female

DRUGS (3)
  1. SULAR [Suspect]
     Indication: HYPERTENSION
     Dosage: 8.5 MG
     Dates: start: 20081017
  2. SYNTHROID [Concomitant]
  3. THYROID REMOVAL [Concomitant]

REACTIONS (7)
  - BACK PAIN [None]
  - DRUG INEFFECTIVE [None]
  - FEELING ABNORMAL [None]
  - HEADACHE [None]
  - HEART RATE [None]
  - NECK PAIN [None]
  - VERTIGO [None]
